FAERS Safety Report 8432674-2 (Version None)
Quarter: 2012Q2

REPORT INFORMATION
  Report Type: 
  Country: None (occurrence: None)
  Receive Date: 20120613
  Receipt Date: 20120611
  Transmission Date: 20120825
  Serious: Yes (Other)
  Sender: FDA-Public Use
  Company Number: US-BRISTOL-MYERS SQUIBB COMPANY-16678013

PATIENT
  Age: 16 Year
  Sex: Male

DRUGS (3)
  1. ABILIFY [Suspect]
     Indication: SCHIZOPHRENIA
  2. ZOLOFT [Suspect]
     Indication: SCHIZOPHRENIA
  3. ZYPREXA [Suspect]

REACTIONS (1)
  - PSYCHOTIC DISORDER [None]
